FAERS Safety Report 10156170 (Version 1)
Quarter: 2014Q2

REPORT INFORMATION
  Report Type: Spontaneous
  Country: US (occurrence: US)
  Receive Date: 20140506
  Receipt Date: 20140506
  Transmission Date: 20141212
  Serious: Yes (Hospitalization)
  Sender: FDA-Public Use
  Company Number: PHHY2014US054354

PATIENT
  Age: 11 Year
  Sex: Male

DRUGS (3)
  1. OXCARBAZEPINE [Suspect]
     Indication: CONDUCT DISORDER
     Dosage: 600 MG, BID
  2. RISPERIDONE [Interacting]
     Indication: CONDUCT DISORDER
     Dosage: 2 MG, BID
  3. RISPERIDONE [Interacting]
     Dosage: 1 MG, BID

REACTIONS (6)
  - Extrapyramidal disorder [Recovered/Resolved]
  - Dysarthria [Recovered/Resolved]
  - Dystonia [Recovered/Resolved]
  - Tongue movement disturbance [Recovered/Resolved]
  - Paraesthesia oral [Recovered/Resolved]
  - Drug ineffective [Unknown]
